FAERS Safety Report 8028085-4 (Version None)
Quarter: 2012Q1

REPORT INFORMATION
  Report Type: 
  Country: None (occurrence: None)
  Receive Date: 20120104
  Receipt Date: 20111220
  Transmission Date: 20120608
  Serious: Yes (Hospitalization)
  Sender: FDA-Public Use
  Company Number: FK201103087

PATIENT
  Age: 43 Year
  Sex: Female

DRUGS (5)
  1. WARFARIN SODIUM [Suspect]
     Indication: PELVIC VENOUS THROMBOSIS
  2. CARBOPLATIN [Concomitant]
  3. PACLITAXEL [Concomitant]
  4. IRINOTECAN (IRINOTECAN) (IRINOTECAN) [Concomitant]
  5. CISPLATIN [Suspect]
     Indication: UTERINE CANCER
     Dosage: 60 MG/M2

REACTIONS (5)
  - DRUG INTERACTION [None]
  - INTERNATIONAL NORMALISED RATIO INCREASED [None]
  - VOMITING [None]
  - DECREASED APPETITE [None]
  - NAUSEA [None]
